FAERS Safety Report 8806109 (Version 1)
Quarter: 2012Q4

REPORT INFORMATION
  Report Type: 
  Country: US (occurrence: US)
  Receive Date: 20120925
  Receipt Date: 20120925
  Transmission Date: 20130627
  Serious: Yes (Death)
  Sender: FDA-Public Use
  Company Number: US-AMGEN-USASP2012059963

PATIENT
  Age: 38 Year
  Sex: Male

DRUGS (2)
  1. NEULASTA [Suspect]
     Indication: CHEMOTHERAPY
  2. ANTINEOPLASTIC AGENTS [Concomitant]
     Indication: SARCOMA

REACTIONS (3)
  - Death [Fatal]
  - Bone pain [Unknown]
  - Lung infiltration [Not Recovered/Not Resolved]
